FAERS Safety Report 5166649-6 (Version None)
Quarter: 2006Q4

REPORT INFORMATION
  Report Type: 
  Country: None (occurrence: None)
  Receive Date: 20061207
  Receipt Date: 20060802
  Transmission Date: 20070319
  Serious: Yes (Hospitalization)
  Sender: FDA-Public Use
  Company Number: EM2006-0438

PATIENT
  Age: 30 Year
  Sex: Male

DRUGS (6)
  1. EFFERALGAN [Concomitant]
  2. DAFALGAN [Concomitant]
  3. COLCHICINE [Concomitant]
  4. TOBI; CHIRON CORPORATION [Suspect]
     Indication: PSEUDOMONAS INFECTION
     Dosage: 300 MG, BID
     Dates: start: 20060621, end: 20060705
  5. TOBI; CHIRON CORPORATION [Suspect]
     Dosage: 300 MG, BID
     Dates: start: 20060712, end: 20060726
  6. MYOLASTAN [Suspect]
     Indication: CHEST PAIN
     Dosage: 200 MG, ONCE
     Route: 048
     Dates: start: 20060719, end: 20060721

REACTIONS (7)
  - DYSPNOEA [None]
  - FATIGUE [None]
  - INCREASED BRONCHIAL SECRETION [None]
  - INFLAMMATION [None]
  - PSEUDOMONAS INFECTION [None]
  - PYREXIA [None]
  - STAPHYLOCOCCAL INFECTION [None]
